FAERS Safety Report 12623939 (Version 1)
Quarter: 2016Q3

REPORT INFORMATION
  Report Type: Spontaneous
  Country: US (occurrence: US)
  Receive Date: 20160804
  Receipt Date: 20160804
  Transmission Date: 20161109
  Serious: Yes (Other)
  Sender: FDA-Public Use
  Company Number: US-BEH-2016060856

PATIENT
  Sex: Female

DRUGS (5)
  1. BERINERT [Suspect]
     Active Substance: HUMAN C1-ESTERASE INHIBITOR
     Dosage: UNK
     Route: 042
     Dates: start: 201408
  2. FIRAZYR [Suspect]
     Active Substance: ICATIBANT ACETATE
     Indication: ABDOMINAL DISTENSION
     Dosage: 1 DOSE
     Route: 042
     Dates: start: 20160319
  3. RUCONEST [Suspect]
     Active Substance: HUMAN C1-ESTERASE INHIBITOR
     Indication: ABDOMINAL DISTENSION
     Dosage: 1 DOSE
     Route: 065
     Dates: start: 20160325
  4. FIRAZYR [Suspect]
     Active Substance: ICATIBANT ACETATE
     Dosage: 2 DOSES
     Route: 042
     Dates: start: 20160325
  5. BERINERT [Suspect]
     Active Substance: HUMAN C1-ESTERASE INHIBITOR
     Indication: HEREDITARY ANGIOEDEMA
     Dosage: 500 UNIT VIALS (3 DOSES OF BERINERT)
     Route: 042
     Dates: start: 20160325

REACTIONS (1)
  - Drug ineffective [Unknown]
